FAERS Safety Report 8839467 (Version 1)
Quarter: 2012Q4

REPORT INFORMATION
  Report Type: Spontaneous
  Country: US (occurrence: None)
  Receive Date: 20121011
  Receipt Date: 20121011
  Transmission Date: 20130627
  Serious: Yes (Hospitalization)
  Sender: FDA-Public Use
  Company Number: None

PATIENT
  Age: 69 Year
  Sex: Female
  Weight: 80.5 kg

DRUGS (1)
  1. FOSAMAX 70MG [Suspect]
     Dosage: 1 tab weekly po
     Route: 048
     Dates: start: 20060110, end: 20120910

REACTIONS (2)
  - Comminuted fracture [None]
  - Femur fracture [None]
